FAERS Safety Report 16349559 (Version 2)
Quarter: 2019Q2

REPORT INFORMATION
  Report Type: Spontaneous
  Country: US (occurrence: US)
  Receive Date: 20190523
  Receipt Date: 20190619
  Transmission Date: 20190711
  Serious: Yes (Hospitalization, Other)
  Sender: FDA-Public Use
  Company Number: US-PFIZER INC-2019214616

PATIENT
  Age: 79 Year
  Sex: Male
  Weight: 103.42 kg

DRUGS (1)
  1. TIKOSYN [Suspect]
     Active Substance: DOFETILIDE
     Indication: ATRIAL FIBRILLATION
     Dosage: 0.25 MG, 2X/DAY (1 CAPSULE TWICE DAILY)
     Route: 048
     Dates: start: 200301

REACTIONS (3)
  - Fluid retention [Unknown]
  - Device malfunction [Unknown]
  - Swelling [Unknown]
